FAERS Safety Report 5449798-4 (Version None)
Quarter: 2007Q3

REPORT INFORMATION
  Report Type: 
  Country: None (occurrence: None)
  Receive Date: 20070910
  Receipt Date: 20070829
  Transmission Date: 20080115
  Serious: Yes (Death, Hospitalization)
  Sender: FDA-Public Use
  Company Number: AZAIT200700263

PATIENT
  Age: 72 Year
  Sex: Male
  Weight: 72 kg

DRUGS (2)
  1. VIDAZA [Suspect]
     Indication: MYELODYSPLASTIC SYNDROME
     Dosage: (140 MG, DAILY X 7)
     Dates: start: 20070711, end: 20070717
  2. VALPROIC ACID [Suspect]
     Indication: MYELODYSPLASTIC SYNDROME
     Dosage: (500 MG, DAILY), ORAL
     Route: 048
     Dates: start: 20070604, end: 20070722

REACTIONS (9)
  - ACUTE PULMONARY OEDEMA [None]
  - ASPERGILLOSIS [None]
  - BLOOD PRESSURE INCREASED [None]
  - CYTOMEGALOVIRUS INFECTION [None]
  - EPSTEIN-BARR VIRUS INFECTION [None]
  - GENERAL PHYSICAL HEALTH DETERIORATION [None]
  - HEART RATE INCREASED [None]
  - PNEUMOCYSTIS JIROVECI PNEUMONIA [None]
  - URINARY RETENTION [None]
